FAERS Safety Report 14808901 (Version 3)
Quarter: 2019Q2

REPORT INFORMATION
  Report Type: Spontaneous
  Country: US (occurrence: US)
  Receive Date: 20180425
  Receipt Date: 20190506
  Transmission Date: 20190711
  Serious: Yes (Other)
  Sender: FDA-Public Use
  Company Number: US-ASTRAZENECA-2018SE50143

PATIENT
  Age: 62 Year
  Sex: Male
  Weight: 112 kg

DRUGS (29)
  1. PANTOPRAZOLE [Suspect]
     Active Substance: PANTOPRAZOLE
     Route: 065
     Dates: start: 20160203
  2. OXYCODONE HYDROCHLORIDE. [Concomitant]
     Active Substance: OXYCODONE HYDROCHLORIDE
     Dosage: 5.0MG UNKNOWN
     Route: 065
     Dates: start: 20131025
  3. LISINOPRIL-HYDROCHLOROTH [Concomitant]
     Dosage: 20-25
     Route: 065
     Dates: start: 20140210
  4. NEXIUM [Suspect]
     Active Substance: ESOMEPRAZOLE MAGNESIUM
     Route: 048
     Dates: start: 20150607, end: 2016
  5. METFORMIN [Concomitant]
     Active Substance: METFORMIN HYDROCHLORIDE
     Route: 065
  6. NICOTINE. [Concomitant]
     Active Substance: NICOTINE
     Route: 065
  7. CELEBREX [Concomitant]
     Active Substance: CELECOXIB
     Dosage: 200.0MG UNKNOWN
     Route: 065
     Dates: start: 20140424
  8. WARFARIN SODIUM. [Concomitant]
     Active Substance: WARFARIN SODIUM
     Dosage: 5.0MG UNKNOWN
     Route: 065
     Dates: start: 20160429
  9. GABAPENTIN. [Concomitant]
     Active Substance: GABAPENTIN
     Route: 065
  10. HYDROCODONE [Concomitant]
     Active Substance: HYDROCODONE
     Dosage: 7.5-325
     Route: 065
     Dates: start: 20130919
  11. PROAIR HFA [Concomitant]
     Active Substance: ALBUTEROL SULFATE
     Route: 065
  12. METHOCARBAMOL. [Concomitant]
     Active Substance: METHOCARBAMOL
     Dosage: 750.0MG UNKNOWN
     Route: 065
     Dates: start: 20130919
  13. ASPIRIN. [Concomitant]
     Active Substance: ASPIRIN
     Route: 065
  14. TRAMADOL HYDROCHLORIDE. [Concomitant]
     Active Substance: TRAMADOL HYDROCHLORIDE
     Dosage: 50.0MG UNKNOWN
     Route: 065
     Dates: start: 20131120
  15. NEXIUM [Suspect]
     Active Substance: ESOMEPRAZOLE MAGNESIUM
     Route: 048
     Dates: start: 2013, end: 2016
  16. FORMOTEROL [Concomitant]
     Active Substance: FORMOTEROL
     Route: 065
  17. ALBUTEROL. [Concomitant]
     Active Substance: ALBUTEROL
     Route: 065
  18. LISINOPRIL. [Concomitant]
     Active Substance: LISINOPRIL
  19. NEXIUM [Suspect]
     Active Substance: ESOMEPRAZOLE MAGNESIUM
     Route: 048
     Dates: start: 2013
  20. NEXIUM 24HR [Suspect]
     Active Substance: ESOMEPRAZOLE MAGNESIUM
     Route: 048
     Dates: start: 2013, end: 2016
  21. HYDROCHLOROTHIAZIDE. [Concomitant]
     Active Substance: HYDROCHLOROTHIAZIDE
     Dosage: 25.0MG UNKNOWN
     Route: 065
     Dates: start: 20131025
  22. SULINDAC. [Concomitant]
     Active Substance: SULINDAC
     Dosage: 200.0MG UNKNOWN
     Route: 065
     Dates: start: 20131120
  23. DIAZEPAM. [Concomitant]
     Active Substance: DIAZEPAM
     Dosage: 5.0MG UNKNOWN
     Route: 065
     Dates: start: 20131201
  24. PRAVASTATIN SODIUM. [Concomitant]
     Active Substance: PRAVASTATIN SODIUM
     Dosage: 20.0MG UNKNOWN
     Route: 065
     Dates: start: 20140210
  25. LEVOFLOXACIN. [Concomitant]
     Active Substance: LEVOFLOXACIN
  26. ROBITUSSIN (GUAIFENESIN) [Concomitant]
     Active Substance: GUAIFENESIN
  27. FISH OIL [Concomitant]
     Active Substance: FISH OIL
     Route: 065
  28. LISINOPRIL. [Concomitant]
     Active Substance: LISINOPRIL
     Dosage: 10.0MG UNKNOWN
     Route: 065
     Dates: start: 20140121
  29. PIROXICAM. [Concomitant]
     Active Substance: PIROXICAM
     Dosage: 20.0MG UNKNOWN
     Route: 065
     Dates: start: 20140210

REACTIONS (8)
  - Thrombosis [Not Recovered/Not Resolved]
  - Diabetes mellitus [Not Recovered/Not Resolved]
  - Spinal osteoarthritis [Unknown]
  - Chronic kidney disease [Unknown]
  - Renal failure [Not Recovered/Not Resolved]
  - Pneumonia [Not Recovered/Not Resolved]
  - Nasopharyngitis [Not Recovered/Not Resolved]
  - Osteoarthritis [Not Recovered/Not Resolved]

NARRATIVE: CASE EVENT DATE: 2015
